FAERS Safety Report 7110231-8 (Version None)
Quarter: 2010Q4

REPORT INFORMATION
  Report Type: 
  Country: None (occurrence: None)
  Receive Date: 20101118
  Receipt Date: 20101004
  Transmission Date: 20110411
  Serious: Yes (Other)
  Sender: FDA-Public Use
  Company Number: US-BAXTER-2010BH003739

PATIENT
  Age: 61 Year
  Sex: Male
  Weight: 81 kg

DRUGS (19)
  1. HEPARIN SODIUM INJECTION [Suspect]
     Indication: ARTERIOGRAM
     Route: 042
     Dates: start: 20071116, end: 20071116
  2. HEPARIN SODIUM 5,000 UNITS IN DEXTROSE 5% [Suspect]
     Indication: THROMBOSIS
     Route: 041
     Dates: start: 20071108, end: 20071114
  3. HEPARIN SODIUM 5,000 UNITS IN DEXTROSE 5% [Suspect]
     Indication: ARTERIAL OCCLUSIVE DISEASE
     Route: 041
     Dates: start: 20071108, end: 20071114
  4. CLONIDINE [Concomitant]
     Indication: PRODUCT USED FOR UNKNOWN INDICATION
     Route: 048
  5. DOLOPHINE HCL [Concomitant]
     Indication: PRODUCT USED FOR UNKNOWN INDICATION
     Route: 048
  6. TAMSULOSIN [Concomitant]
     Indication: PRODUCT USED FOR UNKNOWN INDICATION
     Route: 048
  7. VIAGRA [Concomitant]
     Indication: PRODUCT USED FOR UNKNOWN INDICATION
     Route: 048
  8. CLOPIDOGREL [Concomitant]
     Indication: PRODUCT USED FOR UNKNOWN INDICATION
     Route: 048
  9. SODIUM PHOSPHATE MONOBASIC [Concomitant]
     Indication: PRODUCT USED FOR UNKNOWN INDICATION
     Route: 065
  10. TYLENOL (CAPLET) [Concomitant]
     Indication: PRODUCT USED FOR UNKNOWN INDICATION
     Route: 048
  11. MILK OF MAGNESIA TAB [Concomitant]
     Indication: PRODUCT USED FOR UNKNOWN INDICATION
     Route: 048
  12. BETASEPT                                /USA/ [Concomitant]
     Indication: PRODUCT USED FOR UNKNOWN INDICATION
     Route: 061
  13. POTASSIUM CHLORIDE [Concomitant]
     Indication: PRODUCT USED FOR UNKNOWN INDICATION
     Route: 065
  14. PHENERGAN [Concomitant]
     Indication: PRODUCT USED FOR UNKNOWN INDICATION
     Route: 065
  15. AMBIEN [Concomitant]
     Indication: PRODUCT USED FOR UNKNOWN INDICATION
     Route: 065
  16. BACTRIM DS [Concomitant]
     Indication: PRODUCT USED FOR UNKNOWN INDICATION
     Route: 048
  17. RIFAMPIN [Concomitant]
     Indication: PRODUCT USED FOR UNKNOWN INDICATION
     Route: 048
  18. LOVENOX [Concomitant]
     Indication: PRODUCT USED FOR UNKNOWN INDICATION
     Route: 058
  19. ACETAMINOPHEN AND HYDROCODONE BITARTRATE [Concomitant]
     Indication: PRODUCT USED FOR UNKNOWN INDICATION
     Dates: start: 20100406

REACTIONS (20)
  - ABDOMINAL PAIN [None]
  - ASTHENIA [None]
  - ATELECTASIS [None]
  - BLOOD PRESSURE INCREASED [None]
  - CELLULITIS [None]
  - CELLULITIS GANGRENOUS [None]
  - CHEST PAIN [None]
  - COUGH [None]
  - DEEP VEIN THROMBOSIS [None]
  - FEELING COLD [None]
  - HEADACHE [None]
  - HYPERHIDROSIS [None]
  - HYPOKINESIA [None]
  - NAUSEA [None]
  - OEDEMA PERIPHERAL [None]
  - PAIN [None]
  - STAPHYLOCOCCAL INFECTION [None]
  - VASCULAR INSUFFICIENCY [None]
  - VISION BLURRED [None]
  - VOMITING [None]
